FAERS Safety Report 13575256 (Version 1)
Quarter: 2017Q2

REPORT INFORMATION
  Report Type: Spontaneous
  Country: US (occurrence: US)
  Receive Date: 20170523
  Receipt Date: 20170523
  Transmission Date: 20170830
  Serious: Yes (Hospitalization)
  Sender: FDA-Public Use
  Company Number: None

PATIENT
  Age: 71 Year
  Sex: Male

DRUGS (1)
  1. AMOXICILLIN. [Suspect]
     Active Substance: AMOXICILLIN
     Route: 048
     Dates: start: 20170328, end: 20170328

REACTIONS (5)
  - Hypersensitivity [None]
  - Oesophageal irritation [None]
  - Urticaria [None]
  - Rash [None]
  - International normalised ratio increased [None]

NARRATIVE: CASE EVENT DATE: 20170328
